FAERS Safety Report 21412487 (Version 1)
Quarter: 2022Q4

REPORT INFORMATION
  Report Type: Spontaneous
  Country: US (occurrence: US)
  Receive Date: 20221005
  Receipt Date: 20221005
  Transmission Date: 20230113
  Serious: No
  Sender: FDA-Public Use
  Company Number: US-INTRA-CELLULAR THERAPIES, INC.-2022ICT01011

PATIENT
  Age: 32 Year
  Sex: Female

DRUGS (4)
  1. CAPLYTA [Suspect]
     Active Substance: LUMATEPERONE
     Indication: Schizophrenia
     Dosage: 1 TABLET (42 MG), 1X/DAY
     Route: 048
     Dates: start: 202207
  2. CAPLYTA [Suspect]
     Active Substance: LUMATEPERONE
     Indication: Bipolar disorder
  3. CLONAZEPAM [Suspect]
     Active Substance: CLONAZEPAM
  4. UNSPECIFIED INGREDIENT [Concomitant]
     Active Substance: UNSPECIFIED INGREDIENT

REACTIONS (6)
  - Feeling abnormal [Unknown]
  - Condition aggravated [Unknown]
  - Product dose omission issue [Unknown]
  - Extra dose administered [Unknown]
  - Hypersomnia [Unknown]
  - Headache [Unknown]

NARRATIVE: CASE EVENT DATE: 20220701
